FAERS Safety Report 10257393 (Version 1)
Quarter: 2014Q2

REPORT INFORMATION
  Report Type: Spontaneous
  Country: US (occurrence: None)
  Receive Date: 20140623
  Receipt Date: 20140623
  Transmission Date: 20141212
  Serious: No
  Sender: FDA-Public Use
  Company Number: None

PATIENT
  Age: 29 Year
  Sex: Female
  Weight: 74.84 kg

DRUGS (1)
  1. CETERIZINE 10 MG MYLAN [Suspect]
     Indication: MULTIPLE ALLERGIES
     Dosage: 10MG, ONCE DAILY, TAKEN BY MOUTH
     Route: 048
     Dates: start: 20130403, end: 20140617

REACTIONS (3)
  - Pruritus generalised [None]
  - Rash erythematous [None]
  - Drug effect incomplete [None]
